FAERS Safety Report 5912690-2 (Version None)
Quarter: 2008Q4

REPORT INFORMATION
  Report Type: 
  Country: None (occurrence: None)
  Receive Date: 20081008
  Receipt Date: 20081001
  Transmission Date: 20090506
  Serious: No
  Sender: FDA-Public Use
  Company Number: US-B.I. PHARMACEUTICALS,INC./RIDGEFIELD-2008-BP-13088BP

PATIENT
  Sex: Female

DRUGS (11)
  1. MIRAPEX [Suspect]
     Indication: RESTLESS LEGS SYNDROME
     Route: 048
     Dates: end: 20080801
  2. LOTREL [Concomitant]
     Indication: HYPERTENSION
     Dosage: 10/20 MG DAILY
  3. HYDROCHLOROTHIAZIDE [Concomitant]
     Indication: HYPERTENSION
     Dosage: 25MG
  4. THYROXYL [Concomitant]
     Indication: HYPOTHYROIDISM
  5. TYLENOL (CAPLET) [Concomitant]
  6. LEVOXYL [Concomitant]
     Dosage: .15MG
  7. VICODIN [Concomitant]
  8. SINAMET [Concomitant]
     Dosage: 10/100
  9. TRIAZOLOM [Concomitant]
  10. CALCIUM MAGNESIUM [Concomitant]
  11. IRON [Concomitant]

REACTIONS (9)
  - CONFUSIONAL STATE [None]
  - DEPRESSION [None]
  - GAIT DISTURBANCE [None]
  - GENERAL SYMPTOM [None]
  - JOINT SWELLING [None]
  - OEDEMA PERIPHERAL [None]
  - PAIN [None]
  - SENSATION OF HEAVINESS [None]
  - VARICOSE VEIN [None]
